FAERS Safety Report 7956371 (Version 18)
Quarter: 2013Q2

REPORT INFORMATION
  Report Type: Spontaneous
  Country: IT (occurrence: IT)
  Receive Date: 20110524
  Receipt Date: 20130529
  Transmission Date: 20140414
  Serious: Yes (Hospitalization, Disabling, Other)
  Sender: FDA-Public Use
  Company Number: IT-BIOGENIDEC-2011BI016680

PATIENT
  Age: 14 Year
  Sex: Female

DRUGS (8)
  1. TYSABRI [Suspect]
     Indication: RELAPSING-REMITTING MULTIPLE SCLEROSIS
     Route: 042
     Dates: start: 20100517, end: 201012
  2. TYSABRI [Suspect]
     Indication: RELAPSING-REMITTING MULTIPLE SCLEROSIS
     Route: 042
     Dates: start: 201103, end: 201103
  3. METHYLPREDNISOLONE [Concomitant]
     Dates: start: 201010
  4. METHYLPREDNISOLONE [Concomitant]
     Route: 042
     Dates: start: 201012
  5. METHYLPREDNISOLONE [Concomitant]
     Route: 042
     Dates: start: 20110331
  6. METHYLPREDNISOLONE [Concomitant]
     Dates: start: 201110
  7. METHYLPREDNISOLONE [Concomitant]
     Dates: start: 20120118
  8. PREDNISONE [Concomitant]
     Dates: start: 201010

REACTIONS (4)
  - Progressive multifocal leukoencephalopathy [Not Recovered/Not Resolved]
  - Immune reconstitution inflammatory syndrome [Unknown]
  - Convulsion [Unknown]
  - Multiple sclerosis relapse [Unknown]
